FAERS Safety Report 5925290-5 (Version None)
Quarter: 2008Q4

REPORT INFORMATION
  Report Type: 
  Country: None (occurrence: None)
  Receive Date: 20081020
  Receipt Date: 20081020
  Transmission Date: 20090506
  Serious: Yes (Hospitalization)
  Sender: FDA-Public Use
  Company Number: None

PATIENT
  Age: 52 Year
  Sex: Female
  Weight: 93.89 kg

DRUGS (1)
  1. TRAVOPROST [Suspect]
     Indication: GLAUCOMA
     Dosage: 1 DROPS EVERY DAY EYE
     Dates: start: 20050627, end: 20080711

REACTIONS (5)
  - CORNEAL ABRASION [None]
  - EYE IRRITATION [None]
  - EYE PAIN [None]
  - OCULAR HYPERTENSION [None]
  - SLEEP APNOEA SYNDROME [None]
